FAERS Safety Report 6366733-5 (Version None)
Quarter: 2009Q3

REPORT INFORMATION
  Report Type: 
  Country: None (occurrence: None)
  Receive Date: 20090921
  Receipt Date: 20090916
  Transmission Date: 20100115
  Serious: Yes (Life-Threatening, Hospitalization, Other)
  Sender: FDA-Public Use
  Company Number: JP-BAYER-200912778BYL

PATIENT
  Age: 85 Year
  Sex: Male
  Weight: 56 kg

DRUGS (1)
  1. NEXAVAR [Suspect]
     Indication: RENAL CELL CARCINOMA STAGE III
     Dosage: UNIT DOSE: 200 MG
     Route: 048
     Dates: start: 20090608, end: 20090701

REACTIONS (4)
  - CARDIAC DISORDER [None]
  - ERYTHEMA MULTIFORME [None]
  - MALAISE [None]
  - RASH [None]
